FAERS Safety Report 24770673 (Version 1)
Quarter: 2024Q4

REPORT INFORMATION
  Report Type: Report from Study
  Country: US (occurrence: US)
  Receive Date: 20241224
  Receipt Date: 20241224
  Transmission Date: 20250114
  Serious: Yes (Hospitalization)
  Sender: ABBVIE
  Company Number: US-ABBVIE-6011016

PATIENT
  Sex: Female

DRUGS (1)
  1. HUMIRA [Suspect]
     Active Substance: ADALIMUMAB
     Indication: Crohn^s disease
     Dosage: UNKNOWN
     Route: 058
     Dates: start: 2023, end: 202402

REACTIONS (4)
  - Small intestinal obstruction [Recovered/Resolved]
  - Crohn^s disease [Unknown]
  - Gastrointestinal pain [Unknown]
  - Stress at work [Unknown]

NARRATIVE: CASE EVENT DATE: 20240201
